FAERS Safety Report 21248902 (Version 1)
Quarter: 2022Q3

REPORT INFORMATION
  Report Type: Spontaneous
  Country: US (occurrence: US)
  Receive Date: 20220824
  Receipt Date: 20220824
  Transmission Date: 20221027
  Serious: No
  Sender: FDA-Public Use
  Company Number: US-ANIPHARMA-2022-US-013105

PATIENT
  Sex: Female

DRUGS (2)
  1. ANASTROZOLE [Suspect]
     Active Substance: ANASTROZOLE
     Indication: Product used for unknown indication
     Route: 065
  2. LYNPARZA [Suspect]
     Active Substance: OLAPARIB
     Dosage: 300 MG TWICE A DAY
     Route: 048
     Dates: start: 20220502

REACTIONS (4)
  - Weight loss poor [Unknown]
  - Insomnia [Unknown]
  - Cough [Recovered/Resolved]
  - Renal impairment [Unknown]
